FAERS Safety Report 21200284 (Version 1)
Quarter: 2022Q3

REPORT INFORMATION
  Report Type: Spontaneous
  Country: NO (occurrence: None)
  Receive Date: 20220811
  Receipt Date: 20220811
  Transmission Date: 20221027
  Serious: Yes (Hospitalization)
  Sender: FDA-Public Use
  Company Number: None

PATIENT
  Age: 64 Year
  Sex: Female

DRUGS (14)
  1. TECENTRIQ [Suspect]
     Active Substance: ATEZOLIZUMAB
     Indication: Small cell lung cancer
     Route: 041
     Dates: start: 20220405, end: 20220630
  2. IMOVANE [Concomitant]
     Active Substance: ZOPICLONE
  3. ISOPTIN [Concomitant]
     Active Substance: VERAPAMIL HYDROCHLORIDE
  4. BUMETANIDE [Concomitant]
     Active Substance: BUMETANIDE
  5. EBASTINE [Concomitant]
     Active Substance: EBASTINE
  6. ATROVENT [Concomitant]
     Active Substance: IPRATROPIUM BROMIDE
  7. NALOXEGOL OXALATE [Concomitant]
     Active Substance: NALOXEGOL OXALATE
  8. RAMIPRIL [Concomitant]
     Active Substance: RAMIPRIL
  9. HIPREX (NORWAY) [Concomitant]
  10. BRONKYL [Concomitant]
  11. SYMBICORT [Concomitant]
     Active Substance: BUDESONIDE\FORMOTEROL FUMARATE DIHYDRATE
  12. XARELTO [Concomitant]
     Active Substance: RIVAROXABAN
  13. DIGOXIN [Concomitant]
     Active Substance: DIGOXIN
  14. PANTOPRAZOLE SODIUM [Concomitant]
     Active Substance: PANTOPRAZOLE SODIUM

REACTIONS (4)
  - Dyspnoea [Recovered/Resolved]
  - Epiglottic oedema [Recovered/Resolved]
  - Swollen tongue [Recovered/Resolved]
  - Lip swelling [Recovered/Resolved]

NARRATIVE: CASE EVENT DATE: 20220702
